FAERS Safety Report 7177068-5 (Version None)
Quarter: 2010Q4

REPORT INFORMATION
  Report Type: 
  Country: None (occurrence: None)
  Receive Date: 20101207
  Receipt Date: 20101123
  Transmission Date: 20110411
  Serious: Yes (Hospitalization)
  Sender: FDA-Public Use
  Company Number: DSM-2010-01768

PATIENT
  Age: 2 Year
  Sex: Male

DRUGS (1)
  1. OLMESARTAN MEDOXOMIL /AMLODIPINE BESILATE (OLMESARTAN MEDOXOMIL, AMLOD [Suspect]
     Indication: ACCIDENTAL DRUG INTAKE BY CHILD
     Dosage: (ONCE), ORAL
     Route: 048
     Dates: start: 20101123, end: 20101123

REACTIONS (1)
  - ACCIDENTAL DRUG INTAKE BY CHILD [None]
